FAERS Safety Report 5363474-8 (Version None)
Quarter: 2007Q2

REPORT INFORMATION
  Report Type: 
  Country: None (occurrence: None)
  Receive Date: 20070618
  Receipt Date: 20070607
  Transmission Date: 20071010
  Serious: Yes (Hospitalization)
  Sender: FDA-Public Use
  Company Number: 700250410/AKO4887AE

PATIENT
  Age: 65 Year
  Sex: Female

DRUGS (1)
  1. METHYLENE BLUE, 1%, AKORN/ TAYLOR PHARMACEUTICALS [Suspect]
     Dosage: INTRAVENOUS
     Route: 042
     Dates: start: 20070430, end: 20070430

REACTIONS (2)
  - POST PROCEDURAL COMPLICATION [None]
  - SKIN NECROSIS [None]
